FAERS Safety Report 21682315 (Version 2)
Quarter: 2023Q2

REPORT INFORMATION
  Report Type: Other
  Country: DE (occurrence: None)
  Receive Date: 20221205
  Receipt Date: 20230615
  Transmission Date: 20230721
  Serious: No
  Sender: FDA-Public Use
  Company Number: DE-ROCHE-2952393

PATIENT
  Age: 45 Year
  Sex: Female

DRUGS (9)
  1. OCREVUS [Suspect]
     Active Substance: OCRELIZUMAB
     Indication: Primary progressive multiple sclerosis
     Dosage: 600 MG, 297 DAYS
     Route: 042
     Dates: start: 20211012
  2. COMIRNATY [Suspect]
     Active Substance: TOZINAMERAN
     Indication: Product used for unknown indication
     Route: 065
  3. PREGABALIN [Concomitant]
     Active Substance: PREGABALIN
  4. PREGABALIN [Concomitant]
     Active Substance: PREGABALIN
  5. TIZANIDINE [Concomitant]
     Active Substance: TIZANIDINE
  6. PROPRANOLOL HYDROCHLORIDE [Concomitant]
     Active Substance: PROPRANOLOL HYDROCHLORIDE
  7. NABIXIMOLS [Concomitant]
     Active Substance: NABIXIMOLS
     Dosage: AS NEEDED 2 PUFFS
  8. BOTOX [Concomitant]
     Active Substance: ONABOTULINUMTOXINA
     Route: 030
  9. CORTISONE [Concomitant]
     Active Substance: CORTISONE
     Dosage: IN LAST FEB
     Route: 042

REACTIONS (6)
  - Fatigue [Unknown]
  - Muscle spasticity [Recovering/Resolving]
  - B-lymphocyte count decreased [Not Recovered/Not Resolved]
  - Viral test positive [Not Recovered/Not Resolved]
  - Muscle spasticity [Not Recovered/Not Resolved]
  - Asthenia [Not Recovered/Not Resolved]

NARRATIVE: CASE EVENT DATE: 20211012
